FAERS Safety Report 13910409 (Version 2)
Quarter: 2017Q3

REPORT INFORMATION
  Report Type: Spontaneous
  Country: DE (occurrence: DE)
  Receive Date: 20170828
  Receipt Date: 20170914
  Transmission Date: 20171127
  Serious: Yes (Death)
  Sender: FDA-Public Use
  Company Number: DE-ACTELION-A-CH2017-158369

PATIENT
  Age: 60 Year
  Sex: Male

DRUGS (2)
  1. OPSUMIT [Concomitant]
     Active Substance: MACITENTAN
     Indication: PULMONARY ARTERIAL HYPERTENSION
     Route: 048
  2. UPTRAVI [Suspect]
     Active Substance: SELEXIPAG
     Indication: PULMONARY ARTERIAL HYPERTENSION
     Dosage: 600 ?G, BID
     Route: 048
     Dates: start: 20170807, end: 20170820

REACTIONS (1)
  - Death [Fatal]

NARRATIVE: CASE EVENT DATE: 20170820
